FAERS Safety Report 6885055-7 (Version None)
Quarter: 2010Q3

REPORT INFORMATION
  Report Type: 
  Country: None (occurrence: None)
  Receive Date: 20100729
  Receipt Date: 20071112
  Transmission Date: 20110219
  Serious: No
  Sender: FDA-Public Use
  Company Number: US-PFIZER INC-2007095829

PATIENT

DRUGS (2)
  1. CELEBREX [Suspect]
     Indication: KNEE OPERATION
  2. BEXTRA [Suspect]

REACTIONS (3)
  - GASTROOESOPHAGEAL REFLUX DISEASE [None]
  - HEART RATE INCREASED [None]
  - PRURITUS [None]
